FAERS Safety Report 23255966 (Version 3)
Quarter: 2023Q4

REPORT INFORMATION
  Report Type: Report from Study
  Country: US (occurrence: US)
  Receive Date: 20231204
  Receipt Date: 20231226
  Transmission Date: 20240110
  Serious: Yes (Hospitalization)
  Sender: FDA-Public Use
  Company Number: US-JNJFOC-20231163958

PATIENT
  Age: 75 Year
  Sex: Male

DRUGS (16)
  1. STELARA [Suspect]
     Active Substance: USTEKINUMAB
     Indication: Psoriasis
     Route: 058
     Dates: start: 20231121
  2. STELARA [Suspect]
     Active Substance: USTEKINUMAB
  3. CELEBREX [Concomitant]
     Active Substance: CELECOXIB
  4. LASIX [Concomitant]
     Active Substance: FUROSEMIDE
     Dosage: FORM STRENGTH: 40
  5. IMDUR [Concomitant]
     Active Substance: ISOSORBIDE MONONITRATE
  6. ALLOPURINOL [Concomitant]
     Active Substance: ALLOPURINOL
  7. ZYRTEC [Concomitant]
     Active Substance: CETIRIZINE HYDROCHLORIDE
  8. METFORMIN [Concomitant]
     Active Substance: METFORMIN HYDROCHLORIDE
  9. CRESTOR [Concomitant]
     Active Substance: ROSUVASTATIN CALCIUM
  10. ENTRESTO [Concomitant]
     Active Substance: SACUBITRIL\VALSARTAN
  11. ELIQUIS [Concomitant]
     Active Substance: APIXABAN
     Dosage: STRENGTH: 5
  12. TIKOSYN [Concomitant]
     Active Substance: DOFETILIDE
  13. OMEGA-3 FATTY ACIDS [Concomitant]
     Active Substance: OMEGA-3 FATTY ACIDS
  14. MAGNESIUM [Concomitant]
     Active Substance: MAGNESIUM
  15. ZOLPIDEM [Concomitant]
     Active Substance: ZOLPIDEM TARTRATE
  16. FLUTICASONE PROPIONATE [Concomitant]
     Active Substance: FLUTICASONE PROPIONATE

REACTIONS (4)
  - Surgery [Unknown]
  - Device defective [Unknown]
  - Accidental exposure to product [Unknown]
  - Product dose omission issue [Unknown]

NARRATIVE: CASE EVENT DATE: 20231121
